FAERS Safety Report 13854695 (Version 4)
Quarter: 2017Q4

REPORT INFORMATION
  Report Type: Spontaneous
  Country: JP (occurrence: JP)
  Receive Date: 20170810
  Receipt Date: 20171221
  Transmission Date: 20180320
  Serious: Yes (Death, Other)
  Sender: FDA-Public Use
  Company Number: JP-009507513-1704JPN002358J

PATIENT
  Age: 65 Year
  Sex: Male
  Weight: 50 kg

DRUGS (3)
  1. KEYTRUDA [Suspect]
     Active Substance: PEMBROLIZUMAB
     Indication: LUNG ADENOCARCINOMA
     Dosage: 200 MG, Q3W
     Route: 041
     Dates: start: 20170421, end: 20170521
  2. ELIQUIS [Concomitant]
     Active Substance: APIXABAN
     Dosage: 5.0 MG, UNK
     Route: 048
     Dates: end: 20170515
  3. RANITIDINE. [Concomitant]
     Active Substance: RANITIDINE
     Dosage: 75.0 MG, BID
     Route: 048
     Dates: end: 20170510

REACTIONS (3)
  - Clostridium colitis [Recovered/Resolved]
  - Malignant neoplasm progression [Fatal]
  - Haemoptysis [Unknown]

NARRATIVE: CASE EVENT DATE: 20170421
